FAERS Safety Report 19939628 (Version 1)
Quarter: 2021Q4

REPORT INFORMATION
  Report Type: Spontaneous
  Country: IT (occurrence: IT)
  Receive Date: 20211011
  Receipt Date: 20211011
  Transmission Date: 20220303
  Serious: Yes (Hospitalization, Other)
  Sender: FDA-Public Use
  Company Number: None

PATIENT
  Age: 57 Year
  Sex: Female
  Weight: 92 kg

DRUGS (2)
  1. BINIMETINIB [Suspect]
     Active Substance: BINIMETINIB
     Indication: Metastatic malignant melanoma
     Dosage: 60 MG
     Route: 048
     Dates: start: 20200904
  2. ENCORAFENIB [Suspect]
     Active Substance: ENCORAFENIB
     Indication: Metastatic malignant melanoma
     Dosage: 300 MG
     Route: 048
     Dates: start: 20200904

REACTIONS (3)
  - Rectal haemorrhage [Not Recovered/Not Resolved]
  - Blister [Not Recovered/Not Resolved]
  - Perforation [Not Recovered/Not Resolved]

NARRATIVE: CASE EVENT DATE: 20210731
